APPROVED DRUG PRODUCT: AMOXICILLIN
Active Ingredient: AMOXICILLIN
Strength: 500MG
Dosage Form/Route: CAPSULE;ORAL
Application: A065016 | Product #002
Applicant: SUN PHARMACEUTICAL INDUSTRIES LTD
Approved: Apr 8, 1999 | RLD: No | RS: No | Type: DISCN